FAERS Safety Report 4896974-5 (Version None)
Quarter: 2006Q1

REPORT INFORMATION
  Report Type: 
  Country: None (occurrence: None)
  Receive Date: 20060127
  Receipt Date: 20060117
  Transmission Date: 20060701
  Serious: Yes (Death, Other)
  Sender: FDA-Public Use
  Company Number: 2006010663

PATIENT
  Age: 58 Year
  Sex: Male

DRUGS (1)
  1. XANAX [Suspect]
     Indication: STRESS
     Dosage: 1 MG (0.5 MG, 2 IN 1 D), ORAL
     Route: 048
     Dates: start: 20050801

REACTIONS (3)
  - COMPLETED SUICIDE [None]
  - CONFUSIONAL STATE [None]
  - LOSS OF CONSCIOUSNESS [None]
